FAERS Safety Report 20871781 (Version 1)
Quarter: 2022Q2

REPORT INFORMATION
  Report Type: Spontaneous
  Country: US (occurrence: US)
  Receive Date: 20220525
  Receipt Date: 20220525
  Transmission Date: 20220721
  Serious: No
  Sender: FDA-Public Use
  Company Number: US-BAUSCH-BL-2022-012519

PATIENT
  Sex: Female

DRUGS (2)
  1. LORAZEPAM [Suspect]
     Active Substance: LORAZEPAM
     Indication: Migraine
     Dosage: TOOK HALF OF A 0.5 MG TABLET
     Route: 065
     Dates: start: 20220504
  2. LORAZEPAM [Suspect]
     Active Substance: LORAZEPAM
     Indication: Product use in unapproved indication

REACTIONS (2)
  - Headache [Unknown]
  - Product use in unapproved indication [Unknown]

NARRATIVE: CASE EVENT DATE: 20220504
